FAERS Safety Report 8027395-4 (Version None)
Quarter: 2012Q1

REPORT INFORMATION
  Report Type: 
  Country: None (occurrence: None)
  Receive Date: 20120104
  Receipt Date: 20111220
  Transmission Date: 20120608
  Serious: Yes (Hospitalization, Disabling)
  Sender: FDA-Public Use
  Company Number: JP-DEXPHARM-20112083

PATIENT
  Age: 16 Year
  Sex: Female

DRUGS (1)
  1. CHLORHEXIDINE GLUCONATE [Suspect]

REACTIONS (15)
  - CORNEAL EPITHELIUM DEFECT [None]
  - BLINDNESS [None]
  - CORNEAL OEDEMA [None]
  - CORNEAL OPACITY [None]
  - SURGICAL FAILURE [None]
  - CORNEAL NEOVASCULARISATION [None]
  - CORNEAL TRANSPLANT [None]
  - TRANSPLANT REJECTION [None]
  - GLAUCOMA [None]
  - CATARACT [None]
  - ACCIDENTAL EXPOSURE [None]
  - CORNEAL SCAR [None]
  - SCLERAL GRAFT [None]
  - MYCOTIC CORNEAL ULCER [None]
  - CORNEAL PERFORATION [None]
